FAERS Safety Report 8909017 (Version 1)
Quarter: 2012Q4

REPORT INFORMATION
  Report Type: 
  Country: US (occurrence: US)
  Receive Date: 20121113
  Receipt Date: 20121113
  Transmission Date: 20130627
  Serious: No
  Sender: FDA-Public Use
  Company Number: US-AMGEN-USASP2012011673

PATIENT
  Sex: Female

DRUGS (6)
  1. ENBREL [Suspect]
     Indication: PRODUCT USED FOR UNKNOWN INDICATION
     Dosage: 50 mg, qwk
     Route: 058
  2. LYBREL [Concomitant]
     Dosage: UNK
  3. PRISTIQ [Concomitant]
     Dosage: 50 mg, UNK
  4. CLONAZEPAM [Concomitant]
     Dosage: 1 mg, UNK
  5. METOPROLOL [Concomitant]
     Dosage: 25 mg, UNK
  6. FISH OIL [Concomitant]
     Dosage: 1400 mg, UNK

REACTIONS (3)
  - Atypical pneumonia [Recovering/Resolving]
  - Bronchitis [Recovering/Resolving]
  - Pharyngitis streptococcal [Recovering/Resolving]
